FAERS Safety Report 14352880 (Version 3)
Quarter: 2018Q2

REPORT INFORMATION
  Report Type: Spontaneous
  Country: NL (occurrence: NL)
  Receive Date: 20180104
  Receipt Date: 20180507
  Transmission Date: 20180711
  Serious: Yes (Death, Other)
  Sender: FDA-Public Use
  Company Number: PHHY2017NL196811

PATIENT
  Age: 68 Year
  Sex: Male

DRUGS (12)
  1. DEPOCYT [Suspect]
     Active Substance: CYTARABINE
     Indication: SQUAMOUS CELL CARCINOMA OF SKIN
     Dosage: 50 MG, Q2W
     Route: 065
  2. ERBITUX [Suspect]
     Active Substance: CETUXIMAB
     Indication: METASTASES TO MENINGES
  3. METHOTREXATE. [Suspect]
     Active Substance: METHOTREXATE
     Indication: SQUAMOUS CELL CARCINOMA OF SKIN
     Dosage: 12 MG, Q2W
     Route: 065
  4. METHOTREXATE. [Suspect]
     Active Substance: METHOTREXATE
     Indication: METASTASES TO MENINGES
     Dosage: 12 MG, QMO
     Route: 037
  5. DEPOCYT [Suspect]
     Active Substance: CYTARABINE
     Indication: SQUAMOUS CELL CARCINOMA
     Dosage: LIPOSOME INJECTION
     Route: 065
  6. DEPOCYT [Suspect]
     Active Substance: CYTARABINE
     Indication: METASTASES TO MENINGES
     Dosage: 50 MG, QMO
     Route: 037
  7. ERBITUX [Suspect]
     Active Substance: CETUXIMAB
     Indication: METASTASES TO MENINGES
     Dosage: 250 MG/M2, QW
     Route: 065
  8. DEXAMETHASONE. [Concomitant]
     Active Substance: DEXAMETHASONE
     Indication: PRODUCT USED FOR UNKNOWN INDICATION
     Dosage: 4 MG, QD
     Route: 048
  9. DEPOCYT [Suspect]
     Active Substance: CYTARABINE
     Dosage: 50 MG, Q2W
     Route: 037
  10. ERBITUX [Suspect]
     Active Substance: CETUXIMAB
     Indication: SQUAMOUS CELL CARCINOMA
  11. ERBITUX [Suspect]
     Active Substance: CETUXIMAB
     Indication: SQUAMOUS CELL CARCINOMA OF SKIN
     Dosage: 400 MG/M2, (LOADING DOSE)
     Route: 065
  12. METHOTREXATE. [Suspect]
     Active Substance: METHOTREXATE
     Dosage: 12 MG, Q2W
     Route: 037

REACTIONS (7)
  - Cardio-respiratory arrest [Fatal]
  - Rash [Unknown]
  - Off label use [Unknown]
  - Meningitis chemical [Unknown]
  - Neoplasm progression [Unknown]
  - Dehydration [Unknown]
  - Product use in unapproved indication [Unknown]
